FAERS Safety Report 18665977 (Version 1)
Quarter: 2020Q4

REPORT INFORMATION
  Report Type: Spontaneous
  Country: FR (occurrence: FR)
  Receive Date: 20201226
  Receipt Date: 20201226
  Transmission Date: 20210114
  Serious: Yes (Hospitalization)
  Sender: FDA-Public Use
  Company Number: FR-TEVA-2020-FR-1860740

PATIENT
  Age: 61 Year
  Sex: Female
  Weight: 107 kg

DRUGS (3)
  1. TRAMADOL BASE [Suspect]
     Active Substance: TRAMADOL
     Route: 048
  2. SKENAN [Suspect]
     Active Substance: MORPHINE SULFATE
     Indication: SCIATICA
     Dosage: PROLONGED-RELEASE MICROGRANULES IN HARD CAPSULES:UNIT DOSE:2DOSAGEFORM
     Route: 048
     Dates: start: 20201120, end: 20201121
  3. ACTISKENAN 20 MG, GELULE [Suspect]
     Active Substance: MORPHINE SULFATE
     Indication: SCIATICA
     Dosage: 20MILLIGRAM
     Route: 048
     Dates: start: 20201120, end: 20201121

REACTIONS (3)
  - Oxygen saturation decreased [Recovered/Resolved]
  - Coma [Recovered/Resolved]
  - Drug interaction [Unknown]

NARRATIVE: CASE EVENT DATE: 20201121
